FAERS Safety Report 23755581 (Version 4)
Quarter: 2024Q2

REPORT INFORMATION
  Report Type: Spontaneous
  Country: CN (occurrence: CN)
  Receive Date: 20240418
  Receipt Date: 20240619
  Transmission Date: 20240715
  Serious: Yes (Other)
  Sender: FDA-Public Use
  Company Number: CN-ASTELLAS-2024US011118

PATIENT
  Age: 62 Year
  Sex: Male

DRUGS (3)
  1. CRESEMBA [Suspect]
     Active Substance: ISAVUCONAZONIUM SULFATE
     Indication: Asthma
     Route: 048
     Dates: start: 20240124, end: 20240125
  2. CRESEMBA [Suspect]
     Active Substance: ISAVUCONAZONIUM SULFATE
     Indication: Aspergillus infection
     Dosage: MAINTENANCE DOSE, UNKNOWN FREQ.
     Route: 048
     Dates: start: 20240126, end: 20240224
  3. CRESEMBA [Suspect]
     Active Substance: ISAVUCONAZONIUM SULFATE
     Dosage: UNK UNK, UNKNOWN FREQ.
     Route: 065

REACTIONS (7)
  - Dizziness [Not Recovered/Not Resolved]
  - Gait inability [Not Recovered/Not Resolved]
  - Fall [Not Recovered/Not Resolved]
  - Sleep attacks [Not Recovered/Not Resolved]
  - Balance disorder [Not Recovered/Not Resolved]
  - Asthenia [Not Recovered/Not Resolved]
  - Off label use [Unknown]

NARRATIVE: CASE EVENT DATE: 20240124
